FAERS Safety Report 19166061 (Version 2)
Quarter: 2021Q2

REPORT INFORMATION
  Report Type: Spontaneous
  Country: DE (occurrence: FR)
  Receive Date: 20210421
  Receipt Date: 20210628
  Transmission Date: 20210717
  Serious: Yes (Hospitalization)
  Sender: FDA-Public Use
  Company Number: FR-ELI_LILLY_AND_COMPANY-FR202104008336

PATIENT
  Age: 70 Year
  Sex: Female

DRUGS (1)
  1. ERBITUX [Suspect]
     Active Substance: CETUXIMAB
     Indication: HEAD AND NECK CANCER
     Dosage: UNK UNK, UNKNOWN
     Route: 065

REACTIONS (2)
  - Staphylococcal skin infection [Unknown]
  - Skin toxicity [Unknown]

NARRATIVE: CASE EVENT DATE: 202102
